FAERS Safety Report 21298602 (Version 1)
Quarter: 2022Q3

REPORT INFORMATION
  Report Type: Spontaneous
  Country: US (occurrence: None)
  Receive Date: 20220904
  Receipt Date: 20220904
  Transmission Date: 20221027
  Serious: No
  Sender: FDA-Public Use
  Company Number: None

PATIENT
  Age: 43 Year
  Sex: Female
  Weight: 77.4 kg

DRUGS (15)
  1. TYRVAYA [Suspect]
     Active Substance: VARENICLINE TARTRATE
     Indication: Dry eye
     Dosage: OTHER QUANTITY : 1 SPRAY(S);?FREQUENCY : TWICE A DAY;?OTHER ROUTE : SPRAY INTO NOSTRIL;?
     Route: 050
     Dates: start: 20220803, end: 20220821
  2. TRAZODONE [Concomitant]
     Active Substance: TRAZODONE HYDROCHLORIDE
  3. A [Concomitant]
  4. B-2 [Concomitant]
  5. VITAMIN B12 [Concomitant]
     Active Substance: CYANOCOBALAMIN
  6. C [Concomitant]
  7. VITAMIN D3 [Concomitant]
     Active Substance: CHOLECALCIFEROL
  8. E [Concomitant]
  9. COPPER [Concomitant]
     Active Substance: COPPER
  10. NIACIN [Concomitant]
     Active Substance: NIACIN
  11. CALCIUM [Concomitant]
     Active Substance: CALCIUM
  12. IRON [Concomitant]
     Active Substance: IRON
  13. MAGNESIUM [Concomitant]
     Active Substance: MAGNESIUM
  14. FISH OIL [Concomitant]
     Active Substance: FISH OIL
  15. ZINC [Concomitant]
     Active Substance: ZINC

REACTIONS (4)
  - Diarrhoea [None]
  - Flatulence [None]
  - Abdominal pain [None]
  - Oral candidiasis [None]
